FAERS Safety Report 14305130 (Version 1)
Quarter: 2017Q4

REPORT INFORMATION
  Report Type: Report from Study
  Country: JP (occurrence: JP)
  Receive Date: 20171219
  Receipt Date: 20171219
  Transmission Date: 20180321
  Serious: Yes (Other)
  Sender: FDA-Public Use
  Company Number: JP-OTSUKA-005774

PATIENT
  Age: 27 Year
  Sex: Male
  Weight: 97.7 kg

DRUGS (4)
  1. TATHION [Concomitant]
     Active Substance: GLUTATHIONE
     Dosage: 200 MG, QD
     Route: 048
     Dates: start: 20080929, end: 20081229
  2. ZYLORIC [Concomitant]
     Active Substance: ALLOPURINOL
     Dosage: 100 MG, QD
     Route: 048
     Dates: start: 20080408, end: 20081229
  3. ARIPIPRAZOLE. [Suspect]
     Active Substance: ARIPIPRAZOLE
     Indication: SCHIZOPHRENIA
     Dosage: 12 MG, QD
     Route: 048
     Dates: start: 20080408, end: 20081229
  4. BEZATOL - SLOW RELEASE [Concomitant]
     Active Substance: BEZAFIBRATE
     Dosage: 400 MG, QD
     Route: 048
     Dates: start: 20080408, end: 20081229

REACTIONS (1)
  - Hepatic function abnormal [Unknown]

NARRATIVE: CASE EVENT DATE: 20081229
